FAERS Safety Report 7963471-X (Version None)
Quarter: 2011Q4

REPORT INFORMATION
  Report Type: 
  Country: None (occurrence: None)
  Receive Date: 20111208
  Receipt Date: 20111205
  Transmission Date: 20120403
  Serious: Yes (Death)
  Sender: FDA-Public Use
  Company Number: CN-BAYER-2011-116051

PATIENT
  Age: 65 Year
  Sex: Male

DRUGS (4)
  1. NIFEDIPINE [Concomitant]
     Indication: HYPERTENSION
     Dosage: 10 MG, BID
     Route: 048
  2. HERBAL PREPARATION [Suspect]
     Indication: LACUNAR INFARCTION
     Dosage: 30 ML, QD
     Route: 041
  3. HERBAL PREPARATION [Suspect]
     Dosage: 500 MG, QD
     Route: 041
  4. ASPIRIN [Suspect]
     Indication: LACUNAR INFARCTION
     Dosage: 0.1 G, QD
     Route: 048

REACTIONS (2)
  - CEREBRAL HAEMORRHAGE [None]
  - THROMBOCYTOPENIC PURPURA [None]
